FAERS Safety Report 13440279 (Version 1)
Quarter: 2017Q2

REPORT INFORMATION
  Report Type: Spontaneous
  Country: US (occurrence: US)
  Receive Date: 20170413
  Receipt Date: 20170413
  Transmission Date: 20170830
  Serious: No
  Sender: FDA-Public Use
  Company Number: US-BIOGEN-2017BI00385418

PATIENT
  Sex: Female

DRUGS (1)
  1. TYSABRI [Suspect]
     Active Substance: NATALIZUMAB
     Indication: MULTIPLE SCLEROSIS
     Route: 065
     Dates: start: 20070410, end: 20090203

REACTIONS (4)
  - Paraesthesia [Recovered/Resolved]
  - Urticaria [Recovered/Resolved]
  - General symptom [Recovered/Resolved]
  - Gait disturbance [Recovered/Resolved]
